FAERS Safety Report 7216381-X (Version None)
Quarter: 2011Q1

REPORT INFORMATION
  Report Type: 
  Country: None (occurrence: None)
  Receive Date: 20110107
  Receipt Date: 20101221
  Transmission Date: 20110831
  Serious: No
  Sender: FDA-Public Use
  Company Number: US-B.I. PHARMACEUTICALS,INC./RIDGEFIELD-2010-BP-15275BP

PATIENT
  Sex: Female

DRUGS (10)
  1. CARVEDILOL [Concomitant]
     Indication: HYPERTENSION
     Dosage: 6.25 MG
     Route: 048
  2. POTASSIUM CHLORIDE [Concomitant]
     Indication: PROPHYLAXIS
     Dosage: 10 MCG
     Route: 048
  3. HYDROCODONE [Concomitant]
     Indication: MUSCULOSKELETAL DISCOMFORT
     Route: 048
  4. LEVOTHYROXINE SODIUM [Concomitant]
     Indication: HYPOTHYROIDISM
     Dosage: 88 MCG
     Route: 048
  5. SOMA [Concomitant]
     Indication: INSOMNIA
     Dosage: 350 MG
     Route: 048
  6. AMBIEN [Concomitant]
     Indication: INSOMNIA
     Dosage: 10 MG
     Route: 048
  7. PRADAXA [Suspect]
     Indication: ATRIAL FIBRILLATION
     Dosage: 300 MG
     Route: 048
     Dates: start: 20101102
  8. GABAPENTIN [Concomitant]
     Indication: RESTLESS LEGS SYNDROME
     Dosage: 1800 MG
     Route: 048
  9. TIZANIDINE HCL [Concomitant]
     Indication: MUSCULOSKELETAL DISCOMFORT
     Dosage: 12 MG
     Route: 048
  10. TEMAZEPAM [Concomitant]
     Indication: INSOMNIA
     Dosage: 30 MG
     Route: 048

REACTIONS (4)
  - OESOPHAGEAL OBSTRUCTION [None]
  - DRY SKIN [None]
  - CONDITION AGGRAVATED [None]
  - OESOPHAGEAL PAIN [None]
